FAERS Safety Report 8017932-8 (Version None)
Quarter: 2012Q1

REPORT INFORMATION
  Report Type: 
  Country: None (occurrence: None)
  Receive Date: 20120103
  Receipt Date: 20111222
  Transmission Date: 20120608
  Serious: Yes (Other)
  Sender: FDA-Public Use
  Company Number: GB-JNJFOC-20111200416

PATIENT
  Sex: Male

DRUGS (2)
  1. ZYTIGA [Suspect]
     Route: 048
  2. ZYTIGA [Suspect]
     Indication: PROSTATE CANCER METASTATIC
     Route: 048
     Dates: start: 20111123, end: 20111124

REACTIONS (1)
  - HERPES ZOSTER [None]
